FAERS Safety Report 12113830 (Version 1)
Quarter: 2016Q1

REPORT INFORMATION
  Report Type: Spontaneous
  Country: US (occurrence: US)
  Receive Date: 20160225
  Receipt Date: 20160225
  Transmission Date: 20160526
  Serious: Yes (Other)
  Sender: FDA-Public Use
  Company Number: US-SUN PHARMACEUTICAL INDUSTRIES LTD-2016US-112081

PATIENT
  Age: 31 Year
  Sex: Female

DRUGS (7)
  1. METHOTREXATE [Concomitant]
     Active Substance: METHOTREXATE
     Indication: IMMUNOSUPPRESSION
     Dosage: 10 MG, 1/WEEK
     Route: 065
     Dates: start: 20100910, end: 20101224
  2. AZATHIOPRINE. [Suspect]
     Active Substance: AZATHIOPRINE
     Indication: IMMUNOSUPPRESSION
     Dosage: 100 MG, DAILY
     Route: 065
     Dates: start: 20110223, end: 20120329
  3. RITUXIMAB [Concomitant]
     Active Substance: RITUXIMAB
     Indication: IMMUNOSUPPRESSION
     Dosage: 375 MG, 1/WEEK
     Route: 065
     Dates: start: 20110401
  4. PREDNISONE. [Suspect]
     Active Substance: PREDNISONE
     Indication: LARYNGEAL STENOSIS
  5. PLAQUENIL [Concomitant]
     Active Substance: HYDROXYCHLOROQUINE SULFATE
     Indication: IMMUNOSUPPRESSION
     Dosage: 300 MG, DAILY
     Route: 065
     Dates: start: 20130207, end: 20130411
  6. PREDNISONE. [Suspect]
     Active Substance: PREDNISONE
     Indication: GRANULOMATOSIS WITH POLYANGIITIS
     Dosage: 80 MG, DAILY
     Route: 065
  7. METHOTREXATE [Concomitant]
     Active Substance: METHOTREXATE
     Indication: IMMUNOSUPPRESSION
     Dosage: 25 MG, 1/WEEK
     Route: 065
     Dates: start: 20101224, end: 20110616

REACTIONS (2)
  - Drug-induced liver injury [Unknown]
  - Dyspnoea [Recovering/Resolving]
